FAERS Safety Report 13142379 (Version 2)
Quarter: 2017Q1

REPORT INFORMATION
  Report Type: Spontaneous
  Country: DE (occurrence: DE)
  Receive Date: 20170123
  Receipt Date: 20170217
  Transmission Date: 20170428
  Serious: Yes (Other)
  Sender: FDA-Public Use
  Company Number: DE-ALLERGAN-1702157US

PATIENT
  Sex: Male

DRUGS (2)
  1. CARMEN ACE [Concomitant]
     Active Substance: ENALAPRIL MALEATE\LERCANIDIPINE HYDROCHLORIDE
     Indication: PRODUCT USED FOR UNKNOWN INDICATION
  2. PANZYTRAT 40,000 [Suspect]
     Active Substance: AMYLASE\LIPASE\PROTEASE
     Indication: PANCREATIC ENZYMES DECREASED
     Dosage: 2 DF, UNKNOWN
     Route: 048
     Dates: start: 2001

REACTIONS (1)
  - Nephrolithiasis [Unknown]

NARRATIVE: CASE EVENT DATE: 2008
